FAERS Safety Report 13599777 (Version 1)
Quarter: 2017Q2

REPORT INFORMATION
  Report Type: Other
  Country: TR (occurrence: TR)
  Receive Date: 20170601
  Receipt Date: 20170601
  Transmission Date: 20170830
  Serious: Yes (Disabling)
  Sender: FDA-Public Use
  Company Number: TR-DEXPHARM-20170833

PATIENT
  Age: 25 Year
  Sex: Female

DRUGS (3)
  1. COLCHICINE. [Concomitant]
     Active Substance: COLCHICINE
     Indication: FAMILIAL MEDITERRANEAN FEVER
  2. GABAPENTIN. [Concomitant]
     Active Substance: GABAPENTIN
     Indication: PAIN
  3. DICLOFENAC INJECTION [Suspect]
     Active Substance: DICLOFENAC
     Indication: PROCEDURAL PAIN

REACTIONS (1)
  - Drug administered at inappropriate site [Recovering/Resolving]
